FAERS Safety Report 10387204 (Version 1)
Quarter: 2014Q1

REPORT INFORMATION
  Report Type: Spontaneous
  Country: US (occurrence: None)
  Receive Date: 20140306
  Receipt Date: 20140306
  Transmission Date: 20141002
  Serious: Yes (Other)
  Sender: FDA-Public Use
  Company Number: 163-21880-13043614

PATIENT
  Age: 74 Year
  Sex: Male

DRUGS (10)
  1. LISINOPRIL [Concomitant]
  2. METOPROLOL [Concomitant]
  3. ASA (ACETYLSALICYLIC ACID) [Concomitant]
  4. RED BLOOD CELLS [Concomitant]
  5. REVLIMID (LENALIDOMIDE) (10 MILLIGRAM, CAPSULES) [Suspect]
     Indication: MYELODYSPLASTIC SYNDROME
     Route: 048
     Dates: start: 201301, end: 201303
  6. PROCHLORPERAZINE [Concomitant]
  7. FUROSEMIDE [Concomitant]
  8. SIMVASTATIN [Concomitant]
  9. TERAZOSIN [Concomitant]
  10. FINASTERIDE [Concomitant]

REACTIONS (2)
  - Pancytopenia [None]
  - Leukopenia [None]
